FAERS Safety Report 23718171 (Version 1)
Quarter: 2024Q2

REPORT INFORMATION
  Report Type: Spontaneous
  Country: FR (occurrence: FR)
  Receive Date: 20240408
  Receipt Date: 20240408
  Transmission Date: 20240715
  Serious: Yes (Hospitalization, Other)
  Sender: FDA-Public Use
  Company Number: None

PATIENT
  Age: 36 Year
  Sex: Male

DRUGS (8)
  1. BROMAZEPAM [Suspect]
     Active Substance: BROMAZEPAM
  2. OLANZAPINE [Suspect]
     Active Substance: OLANZAPINE
  3. SKENAN [Suspect]
     Active Substance: MORPHINE SULFATE
  4. CANNABIS SATIVA SUBSP. INDICA TOP [Suspect]
     Active Substance: CANNABIS SATIVA SUBSP. INDICA TOP
  5. ALCOHOL [Suspect]
     Active Substance: ALCOHOL
     Dosage: 6 BEERS
  6. COCAINE [Suspect]
     Active Substance: COCAINE
  7. AMITRIPTYLINE HYDROCHLORIDE [Suspect]
     Active Substance: AMITRIPTYLINE HYDROCHLORIDE
     Dosage: 100MG TABLETS
  8. ZOPICLONE [Suspect]
     Active Substance: ZOPICLONE

REACTIONS (7)
  - Hypoventilation [Recovered/Resolved]
  - Altered state of consciousness [Recovered/Resolved]
  - Respiratory acidosis [Recovered/Resolved]
  - Toxicity to various agents [Unknown]
  - Substance use disorder [Recovered/Resolved]
  - Neurological decompensation [Unknown]
  - Miosis [Recovered/Resolved]

NARRATIVE: CASE EVENT DATE: 20231125
